FAERS Safety Report 10787360 (Version 3)
Quarter: 2015Q1

REPORT INFORMATION
  Report Type: Spontaneous
  Country: US (occurrence: US)
  Receive Date: 20150212
  Receipt Date: 20150221
  Transmission Date: 20150721
  Serious: Yes (Hospitalization)
  Sender: FDA-Public Use
  Company Number: US-ABBVIE-15K-163-1344462-00

PATIENT
  Age: 48 Year
  Sex: Female
  Weight: 72.19 kg

DRUGS (7)
  1. NORTRIPTYLINE [Concomitant]
     Active Substance: NORTRIPTYLINE
     Indication: ABDOMINAL PAIN UPPER
  2. HUMIRA [Suspect]
     Active Substance: ADALIMUMAB
     Route: 065
     Dates: start: 2013, end: 2014
  3. ESTROGEN [Concomitant]
     Active Substance: ESTRONE\SUS SCROFA OVARY
     Indication: HORMONE REPLACEMENT THERAPY
  4. HUMIRA [Suspect]
     Active Substance: ADALIMUMAB
     Route: 065
     Dates: start: 2013, end: 2013
  5. HUMIRA [Suspect]
     Active Substance: ADALIMUMAB
     Route: 065
  6. PROPANOLOL [Concomitant]
     Active Substance: PROPRANOLOL HYDROCHLORIDE
     Indication: OCCIPITAL NEURALGIA
  7. HUMIRA [Suspect]
     Active Substance: ADALIMUMAB
     Indication: CROHN^S DISEASE
     Route: 065
     Dates: start: 2013, end: 2013

REACTIONS (10)
  - Dehydration [Recovered/Resolved]
  - Blood urine present [Recovered/Resolved]
  - Hepatic enzyme increased [Recovered/Resolved]
  - Drug dose omission [Unknown]
  - Syncope [Recovered/Resolved]
  - Inflammatory marker increased [Recovered/Resolved]
  - Abdominal pain [Recovered/Resolved]
  - Crohn^s disease [Unknown]
  - Pyrexia [Recovered/Resolved]
  - Vomiting [Recovered/Resolved]

NARRATIVE: CASE EVENT DATE: 20150116
